FAERS Safety Report 11246417 (Version 1)
Quarter: 2015Q3

REPORT INFORMATION
  Report Type: Spontaneous
  Country: US (occurrence: None)
  Receive Date: 20150706
  Receipt Date: 20150706
  Transmission Date: 20151125
  Serious: No
  Sender: FDA-Public Use
  Company Number: None

PATIENT
  Age: 31 Year
  Sex: Female
  Weight: 45.36 kg

DRUGS (3)
  1. DIAZEPAM. [Concomitant]
     Active Substance: DIAZEPAM
  2. ADVIL [Concomitant]
     Active Substance: IBUPROFEN
  3. NORTRIPTYLINE [Suspect]
     Active Substance: NORTRIPTYLINE
     Indication: NEURALGIA
     Route: 048
     Dates: start: 20150623, end: 20150705

REACTIONS (10)
  - Abdominal pain [None]
  - Abdominal distension [None]
  - Panic attack [None]
  - Flatulence [None]
  - Nightmare [None]
  - Hyperhidrosis [None]
  - Tremor [None]
  - Palpitations [None]
  - Irritability [None]
  - Dry mouth [None]

NARRATIVE: CASE EVENT DATE: 20150628
